FAERS Safety Report 6043650-1 (Version None)
Quarter: 2009Q1

REPORT INFORMATION
  Report Type: 
  Country: None (occurrence: None)
  Receive Date: 20090115
  Receipt Date: 20090102
  Transmission Date: 20090719
  Serious: Yes (Other)
  Sender: FDA-Public Use
  Company Number: FGB-SEPTODONT200900001

PATIENT
  Age: 66 Year
  Sex: Female

DRUGS (7)
  1. LIDOCAINE HYDROCHLORIDE 2% W/ EPINEPHRINE INJ [Suspect]
     Indication: LOCAL ANAESTHESIA
     Dosage: BUCCAL
     Route: 002
     Dates: start: 20081120
  2. ANADIN (ASPIRIN, CAFFEINE, PARACETAMOL, QUININE SULPHATE) [Suspect]
  3. TRAZODONE HCL [Concomitant]
  4. UNKNOWN [Concomitant]
  5. UNKNOWN [Concomitant]
  6. UNKNOWN [Concomitant]
  7. UNKNOWN [Concomitant]

REACTIONS (3)
  - BALANCE DISORDER [None]
  - INCONTINENCE [None]
  - NAUSEA [None]
